FAERS Safety Report 16207731 (Version 1)
Quarter: 2019Q2

REPORT INFORMATION
  Report Type: Spontaneous
  Country: FR (occurrence: FR)
  Receive Date: 20190417
  Receipt Date: 20190417
  Transmission Date: 20190711
  Serious: Yes (Other)
  Sender: FDA-Public Use
  Company Number: FR-GLAXOSMITHKLINE-FR2019068884

PATIENT
  Age: 46 Year
  Sex: Female
  Weight: 79 kg

DRUGS (6)
  1. AZANTAC [Suspect]
     Active Substance: RANITIDINE HYDROCHLORIDE
     Indication: PREMEDICATION
     Dosage: 50 MG, SINGLE
     Route: 041
     Dates: start: 20190320, end: 20190320
  2. ONDANSETRON [Suspect]
     Active Substance: ONDANSETRON
     Indication: PREMEDICATION
     Dosage: 8 MG, SINGLE
     Route: 042
     Dates: start: 20190320, end: 20190320
  3. POLARAMINE [Suspect]
     Active Substance: DEXCHLORPHENIRAMINE MALEATE
     Indication: PREMEDICATION
     Dosage: 5 MG, SINGLE
     Route: 041
     Dates: start: 20190320, end: 20190320
  4. PACLITAXEL. [Suspect]
     Active Substance: PACLITAXEL
     Indication: GENITOURINARY TRACT NEOPLASM
     Dosage: 336 MG, SINGLE
     Route: 041
     Dates: start: 20190320, end: 20190320
  5. EMEND [Suspect]
     Active Substance: APREPITANT
     Indication: PREMEDICATION
     Dosage: 125 MG, SINGLE
     Route: 048
     Dates: start: 20190320, end: 20190320
  6. METHYLPREDNISOLONE. [Suspect]
     Active Substance: METHYLPREDNISOLONE
     Indication: PREMEDICATION
     Dosage: 79 MG, SINGLE
     Route: 041
     Dates: start: 20190320, end: 20190320

REACTIONS (3)
  - Malaise [Recovered/Resolved]
  - Chills [Recovered/Resolved]
  - Erythema [Recovered/Resolved]

NARRATIVE: CASE EVENT DATE: 20190320
